FAERS Safety Report 23729565 (Version 2)
Quarter: 2024Q2

REPORT INFORMATION
  Report Type: Spontaneous
  Country: US (occurrence: US)
  Receive Date: 20240410
  Receipt Date: 20240416
  Transmission Date: 20240715
  Serious: No
  Sender: FDA-Public Use
  Company Number: US-SA-2024SA095783

PATIENT
  Age: 20 Month
  Sex: Male

DRUGS (4)
  1. ELOCTATE [Suspect]
     Active Substance: EFMOROCTOCOG ALFA
     Dosage: 275 U/ 550 U, PRN (AS DIRECTED/ AS NEEDED)
     Route: 042
  2. ELOCTATE [Suspect]
     Active Substance: EFMOROCTOCOG ALFA
     Dosage: 275 U/ 550 U, PRN (AS DIRECTED/ AS NEEDED)
     Route: 042
  3. ELOCTATE [Suspect]
     Active Substance: EFMOROCTOCOG ALFA
     Dosage: 737 U, PRN
     Route: 042
  4. ELOCTATE [Suspect]
     Active Substance: EFMOROCTOCOG ALFA
     Dosage: 737 U, PRN
     Route: 042

REACTIONS (3)
  - Post procedural haemorrhage [Recovered/Resolved]
  - Poor venous access [Unknown]
  - Circumcision [Unknown]

NARRATIVE: CASE EVENT DATE: 20240325
